FAERS Safety Report 19726022 (Version 1)
Quarter: 2021Q3

REPORT INFORMATION
  Report Type: Not Available
  Country: US (occurrence: US)
  Receive Date: 20210819
  Receipt Date: 20210819
  Transmission Date: 20211014
  Serious: No
  Sender: FDA-Public Use
  Company Number: US-MANNKIND CORPORATION-2021MK000014

PATIENT
  Sex: Male
  Weight: 86.26 kg

DRUGS (1)
  1. AFREZZA [Suspect]
     Active Substance: INSULIN HUMAN
     Indication: TYPE 1 DIABETES MELLITUS
     Dates: start: 2015, end: 2016

REACTIONS (2)
  - Blood glucose abnormal [Unknown]
  - Blood glucose decreased [Unknown]
